FAERS Safety Report 17789861 (Version 1)
Quarter: 2020Q2

REPORT INFORMATION
  Report Type: Spontaneous
  Country: US (occurrence: US)
  Receive Date: 20200513
  Receipt Date: 20200513
  Transmission Date: 20200714
  Serious: Yes (Disabling, Other)
  Sender: FDA-Public Use
  Company Number: None

PATIENT
  Age: 79 Year
  Sex: Female
  Weight: 58.06 kg

DRUGS (28)
  1. PROLIA [Suspect]
     Active Substance: DENOSUMAB
     Indication: OSTEOPOROTIC FRACTURE
     Dosage: ?          OTHER ROUTE:INJECTION?
     Dates: start: 20190522
  2. FOSAMAX [Suspect]
     Active Substance: ALENDRONATE SODIUM
  3. SINGULAIR [Concomitant]
     Active Substance: MONTELUKAST SODIUM
  4. HYDROXYCHLOROQUINE [Concomitant]
     Active Substance: HYDROXYCHLOROQUINE
  5. VENTOLIN INHALER PRN BRONCHOCONSTRICTION [Concomitant]
  6. OXYCODONE [Concomitant]
     Active Substance: OXYCODONE
  7. ACETAMINOPHEN. [Concomitant]
     Active Substance: ACETAMINOPHEN
  8. BIOTIN [Concomitant]
     Active Substance: BIOTIN
  9. METHOCARBAMOL. [Concomitant]
     Active Substance: METHOCARBAMOL
  10. NASACORT AQ [Concomitant]
     Active Substance: TRIAMCINOLONE ACETONIDE
  11. VITAMIN B6 [Concomitant]
     Active Substance: PYRIDOXINE HYDROCHLORIDE
  12. SYNTHROID [Concomitant]
     Active Substance: LEVOTHYROXINE SODIUM
  13. DICLOFENAC SODIUM. [Concomitant]
     Active Substance: DICLOFENAC SODIUM
  14. ESTER C [Concomitant]
  15. MURO 128 EYE DROPS [Concomitant]
  16. PROLIA [Suspect]
     Active Substance: DENOSUMAB
     Indication: SPINAL COMPRESSION FRACTURE
     Dosage: ?          OTHER ROUTE:INJECTION?
     Dates: start: 20190522
  17. BONIVA [Suspect]
     Active Substance: IBANDRONATE SODIUM
  18. VITAMIN D3 [Concomitant]
     Active Substance: CHOLECALCIFEROL
  19. CHROMIUM PICOLINATE [Concomitant]
     Active Substance: CHROMIUM PICOLINATE
  20. CO-ENZYME Q-10 [Concomitant]
  21. PROBIOTIC [Concomitant]
     Active Substance: PROBIOTICS NOS
  22. VIACTIV CALCIUM CHEW [Concomitant]
  23. TRAMADOL. [Suspect]
     Active Substance: TRAMADOL
  24. MURO 128 OINTMENT OS [Concomitant]
  25. MULTIVITAMIN WITH D3 [Concomitant]
  26. DHA/EPA FISH OIL [Concomitant]
  27. POTASSIUM GLUCONATE [Concomitant]
     Active Substance: POTASSIUM GLUCONATE
  28. MAGNESIUM CITRATE. [Concomitant]
     Active Substance: MAGNESIUM CITRATE

REACTIONS (25)
  - Heart rate irregular [None]
  - Skin fissures [None]
  - Hypoglycaemia [None]
  - Abnormal loss of weight [None]
  - Pain in jaw [None]
  - Tendon rupture [None]
  - Pain [None]
  - Nasal congestion [None]
  - Muscle spasms [None]
  - Asthenia [None]
  - Dizziness [None]
  - Back pain [None]
  - Pollakiuria [None]
  - Pulmonary congestion [None]
  - Peripheral swelling [None]
  - Micturition urgency [None]
  - Musculoskeletal stiffness [None]
  - Arthralgia [None]
  - Loss of personal independence in daily activities [None]
  - Tremor [None]
  - Food aversion [None]
  - Blood pressure decreased [None]
  - Myalgia [None]
  - Chills [None]
  - Dysphonia [None]

NARRATIVE: CASE EVENT DATE: 20190522
